FAERS Safety Report 9169233 (Version 4)
Quarter: 2015Q3

REPORT INFORMATION
  Report Type: Report from Study
  Country: FR (occurrence: FR)
  Receive Date: 20130318
  Receipt Date: 20150903
  Transmission Date: 20151125
  Serious: Yes (Hospitalization, Other)
  Sender: FDA-Public Use
  Company Number: FR-ROCHE-1199829

PATIENT
  Age: 64 Year
  Sex: Female
  Weight: 68 kg

DRUGS (35)
  1. TOCILIZUMAB [Suspect]
     Active Substance: TOCILIZUMAB
     Route: 041
     Dates: start: 20110323
  2. AMLOR [Concomitant]
     Active Substance: AMLODIPINE BESYLATE
     Route: 065
     Dates: start: 20121206
  3. ATENOLOL. [Concomitant]
     Active Substance: ATENOLOL
     Route: 065
     Dates: start: 20120109
  4. GLUCOPHAGE [Concomitant]
     Active Substance: METFORMIN HYDROCHLORIDE
     Route: 065
     Dates: start: 20121206
  5. MOPRAL [Concomitant]
     Active Substance: OMEPRAZOLE SODIUM
     Route: 065
     Dates: start: 20130613
  6. TENORMIN [Concomitant]
     Active Substance: ATENOLOL
     Route: 065
  7. AMLOR [Concomitant]
     Active Substance: AMLODIPINE BESYLATE
     Route: 065
     Dates: start: 20110701
  8. AMLOR [Concomitant]
     Active Substance: AMLODIPINE BESYLATE
     Route: 065
     Dates: start: 20120109
  9. METFORMIN [Concomitant]
     Active Substance: METFORMIN HYDROCHLORIDE
     Route: 065
  10. DANOL [Concomitant]
     Active Substance: DANAZOL
     Route: 065
  11. ATENOLOL. [Concomitant]
     Active Substance: ATENOLOL
     Route: 065
     Dates: start: 20110701
  12. ATENOLOL. [Concomitant]
     Active Substance: ATENOLOL
     Route: 065
     Dates: start: 20130613
  13. TOCILIZUMAB [Suspect]
     Active Substance: TOCILIZUMAB
     Route: 041
     Dates: start: 20110223
  14. TOCILIZUMAB [Suspect]
     Active Substance: TOCILIZUMAB
     Route: 041
     Dates: start: 20110424
  15. MOPRAL [Concomitant]
     Active Substance: OMEPRAZOLE SODIUM
     Route: 065
     Dates: start: 20110701
  16. LYSANXIA [Concomitant]
     Active Substance: PRAZEPAM
     Dosage: DOSE- 1/2 DF
     Route: 065
     Dates: start: 20130613
  17. GLUCOPHAGE [Concomitant]
     Active Substance: METFORMIN HYDROCHLORIDE
     Route: 065
     Dates: start: 20130613
  18. MOPRAL [Concomitant]
     Active Substance: OMEPRAZOLE SODIUM
     Route: 065
     Dates: start: 20120109
  19. HEMI-DAONIL [Concomitant]
     Active Substance: GLYBURIDE
     Dosage: DOSE- 1/2 DF
     Route: 065
     Dates: start: 20120109
  20. TARDYFERON (FRANCE) [Concomitant]
     Route: 065
     Dates: start: 20121206
  21. BIPROLOL [Concomitant]
  22. HEMI-DAONIL [Concomitant]
     Active Substance: GLYBURIDE
     Route: 065
     Dates: start: 20110701
  23. HEMI-DAONIL [Concomitant]
     Active Substance: GLYBURIDE
     Dosage: DOSE- 1/2 DF
     Route: 065
     Dates: start: 20130613
  24. BI-PROFENID [Concomitant]
     Active Substance: KETOPROFEN
     Route: 065
  25. TOCILIZUMAB [Suspect]
     Active Substance: TOCILIZUMAB
     Indication: RHEUMATOID ARTHRITIS
     Route: 041
     Dates: start: 20110121, end: 20110530
  26. TOCILIZUMAB [Suspect]
     Active Substance: TOCILIZUMAB
     Route: 041
     Dates: start: 20110530, end: 20110701
  27. RITUXIMAB [Suspect]
     Active Substance: RITUXIMAB
     Indication: RHEUMATOID ARTHRITIS
     Route: 065
  28. CORTANCYL [Concomitant]
     Active Substance: PREDNISONE
     Route: 065
  29. MOPRAL [Concomitant]
     Active Substance: OMEPRAZOLE SODIUM
     Route: 065
     Dates: start: 20121206
  30. AMLOR [Concomitant]
     Active Substance: AMLODIPINE BESYLATE
     Route: 065
     Dates: start: 20130613
  31. LYSANXIA [Concomitant]
     Active Substance: PRAZEPAM
     Dosage: DOSE- 1/2 DF
     Route: 065
     Dates: start: 20110701
  32. EUPANTOL [Concomitant]
     Active Substance: PANTOPRAZOLE SODIUM
     Route: 065
  33. ATENOLOL. [Concomitant]
     Active Substance: ATENOLOL
     Route: 065
     Dates: start: 20121206
  34. GLUCOPHAGE [Concomitant]
     Active Substance: METFORMIN HYDROCHLORIDE
     Route: 065
     Dates: start: 20110701
  35. GLUCOPHAGE [Concomitant]
     Active Substance: METFORMIN HYDROCHLORIDE
     Route: 065
     Dates: start: 20120109

REACTIONS (11)
  - Leukopenia [Recovered/Resolved]
  - Hiatus hernia [Recovered/Resolved]
  - Eye pain [Recovered/Resolved]
  - Fall [Unknown]
  - Anaemia [Recovered/Resolved]
  - Pyrexia [Recovered/Resolved]
  - Hypertension [Recovered/Resolved]
  - Epistaxis [Recovered/Resolved]
  - Bone fissure [Recovered/Resolved]
  - Rib fracture [Recovered/Resolved]
  - Rheumatoid arthritis [Recovered/Resolved]

NARRATIVE: CASE EVENT DATE: 20110324
